FAERS Safety Report 6077619-8 (Version None)
Quarter: 2009Q1

REPORT INFORMATION
  Report Type: 
  Country: None (occurrence: None)
  Receive Date: 20090213
  Receipt Date: 20090204
  Transmission Date: 20090719
  Serious: Yes (Hospitalization)
  Sender: FDA-Public Use
  Company Number: CH-ASTRAZENECA-2009PK00533

PATIENT

DRUGS (2)
  1. SEROQUEL [Suspect]
     Route: 048
  2. FLUCTINE [Suspect]

REACTIONS (1)
  - PULMONARY EMBOLISM [None]
